FAERS Safety Report 7235255-1 (Version None)
Quarter: 2011Q1

REPORT INFORMATION
  Report Type: 
  Country: None (occurrence: None)
  Receive Date: 20110114
  Receipt Date: 20110114
  Transmission Date: 20110831
  Serious: Yes (Other)
  Sender: FDA-Public Use
  Company Number: None

PATIENT
  Age: 43 Year
  Sex: Female
  Weight: 68.4932 kg

DRUGS (3)
  1. AMBIEN [Suspect]
     Indication: DEPRESSION
     Dosage: 1 PILL DAILY PO
     Route: 048
     Dates: start: 20091215, end: 20100530
  2. AMBIEN [Suspect]
     Indication: ANXIETY
     Dosage: 1 PILL DAILY PO
     Route: 048
     Dates: start: 20091215, end: 20100530
  3. AMBIEN [Suspect]
     Indication: INSOMNIA
     Dosage: 1 PILL DAILY PO
     Route: 048
     Dates: start: 20091215, end: 20100530

REACTIONS (16)
  - PARANOIA [None]
  - BACK PAIN [None]
  - HYPERHIDROSIS [None]
  - DIARRHOEA [None]
  - AMNESIA [None]
  - FEELING ABNORMAL [None]
  - DEPRESSION [None]
  - ANXIETY [None]
  - FEAR [None]
  - CRYING [None]
  - MIDDLE INSOMNIA [None]
  - WEIGHT DECREASED [None]
  - ACTIVITIES OF DAILY LIVING IMPAIRED [None]
  - LIBIDO DECREASED [None]
  - APATHY [None]
  - DECREASED APPETITE [None]
